FAERS Safety Report 6278772-3 (Version None)
Quarter: 2009Q3

REPORT INFORMATION
  Report Type: 
  Country: None (occurrence: None)
  Receive Date: 20090721
  Receipt Date: 20090709
  Transmission Date: 20100115
  Serious: Yes (Other)
  Sender: FDA-Public Use
  Company Number: 237689K09USA

PATIENT
  Age: 33 Year
  Sex: Female

DRUGS (3)
  1. REBIF [Suspect]
     Indication: MULTIPLE SCLEROSIS
     Dosage: 44 MCG, 3 IN 1 WEEKS, SUBCUTANEOUS
     Route: 058
     Dates: start: 20060417
  2. IBUPROFEN [Concomitant]
  3. TYLENOL [Concomitant]

REACTIONS (4)
  - ABDOMINAL DISCOMFORT [None]
  - COLONIC POLYP [None]
  - LARGE INTESTINAL ULCER [None]
  - NODULE [None]
